FAERS Safety Report 7043681-9 (Version None)
Quarter: 2010Q4

REPORT INFORMATION
  Report Type: 
  Country: None (occurrence: None)
  Receive Date: 20101013
  Receipt Date: 20100308
  Transmission Date: 20110411
  Serious: No
  Sender: FDA-Public Use
  Company Number: US-MYLANLABS-2010S1003787

PATIENT
  Age: 75 Year
  Sex: Male

DRUGS (2)
  1. CARBIDOPA AND LEVODOPA EXTENDED-RELEASE TABLETS [Suspect]
     Indication: PARKINSON'S DISEASE
     Route: 048
     Dates: start: 20080306
  2. CARBIDOPA AND LEVODOPA EXTENDED-RELEASE TABLETS [Suspect]
     Route: 048
     Dates: start: 20080306

REACTIONS (2)
  - BLOOD CHOLESTEROL DECREASED [None]
  - THERAPEUTIC RESPONSE UNEXPECTED [None]
